FAERS Safety Report 7290809-1 (Version None)
Quarter: 2011Q1

REPORT INFORMATION
  Report Type: 
  Country: None (occurrence: None)
  Receive Date: 20110214
  Receipt Date: 20110202
  Transmission Date: 20110831
  Serious: Yes (Hospitalization)
  Sender: FDA-Public Use
  Company Number: DE-ROCHE-759102

PATIENT
  Sex: Female
  Weight: 83 kg

DRUGS (13)
  1. NEUPOGEN [Concomitant]
     Dosage: IF REQUIRED AFTER CONSULTATION
     Route: 058
  2. CERTICAN [Concomitant]
     Route: 048
  3. RIBAVIRIN [Suspect]
     Route: 048
     Dates: start: 20101028
  4. PANTOPRAZOLE [Concomitant]
     Route: 048
  5. SEMPERA [Concomitant]
     Route: 048
  6. CIPRALEX [Concomitant]
     Route: 048
  7. ARANESP [Concomitant]
     Route: 058
  8. IDEOS [Concomitant]
     Route: 048
  9. POLAMIDON [Concomitant]
     Indication: DRUG WITHDRAWAL MAINTENANCE THERAPY
     Route: 048
  10. BATRAFEN [Concomitant]
  11. PEGINTERFERON ALFA-2A [Suspect]
     Route: 058
     Dates: start: 20101028
  12. URSO FALK [Concomitant]
     Route: 048
  13. LACTULOSE [Concomitant]
     Dosage: WHEN REQUIRED

REACTIONS (4)
  - INFECTION [None]
  - PYREXIA [None]
  - HAEMOLYSIS [None]
  - ANAEMIA [None]
